FAERS Safety Report 18765809 (Version 1)
Quarter: 2021Q1

REPORT INFORMATION
  Report Type: Spontaneous
  Country: FI (occurrence: FI)
  Receive Date: 20210121
  Receipt Date: 20210121
  Transmission Date: 20210419
  Serious: Yes (Life-Threatening, Hospitalization, Other)
  Sender: FDA-Public Use
  Company Number: FI-HRAPH01-2021000007

PATIENT
  Age: 25 Year
  Sex: Female

DRUGS (1)
  1. ELLAONE [Suspect]
     Active Substance: ULIPRISTAL ACETATE
     Indication: POST COITAL CONTRACEPTION
     Dosage: 30 MG X 1
     Route: 048
     Dates: start: 20200719, end: 20200719

REACTIONS (3)
  - Internal haemorrhage [Recovered/Resolved with Sequelae]
  - Ruptured ectopic pregnancy [Recovered/Resolved with Sequelae]
  - Unintended pregnancy [Recovered/Resolved]

NARRATIVE: CASE EVENT DATE: 2020
